FAERS Safety Report 9894450 (Version 2)
Quarter: 2014Q1

REPORT INFORMATION
  Report Type: Spontaneous
  Country: DE (occurrence: DE)
  Receive Date: 20140213
  Receipt Date: 20140324
  Transmission Date: 20141002
  Serious: Yes (Death, Other)
  Sender: FDA-Public Use
  Company Number: PHHY2014DE016305

PATIENT
  Age: 56 Year
  Sex: Male

DRUGS (3)
  1. AFINITOR [Suspect]
     Indication: RENAL CELL CARCINOMA
     Dates: start: 200910, end: 201312
  2. PAMIDRONATE [Suspect]
     Dosage: 90 MG, QMO
     Dates: start: 200512, end: 200909
  3. PAMIDRONATE [Suspect]
     Dosage: 90 MG, QMO
     Dates: start: 200910, end: 201005

REACTIONS (2)
  - Death [Fatal]
  - Osteonecrosis of jaw [Unknown]
